FAERS Safety Report 8392467-1 (Version None)
Quarter: 2012Q2

REPORT INFORMATION
  Report Type: 
  Country: None (occurrence: None)
  Receive Date: 20120529
  Receipt Date: 20120523
  Transmission Date: 20120825
  Serious: Yes (Other)
  Sender: FDA-Public Use
  Company Number: US-PFIZER INC-2012082166

PATIENT
  Sex: Female
  Weight: 94.785 kg

DRUGS (3)
  1. INSULIN [Concomitant]
     Indication: DIABETES MELLITUS
     Dosage: 15 IU, DAILY
  2. DILANTIN [Concomitant]
     Indication: CONVULSION
     Dosage: UNK
  3. ZOSYN [Suspect]
     Indication: INFECTION
     Dosage: UNK
     Route: 042
     Dates: start: 20110102, end: 20110105

REACTIONS (6)
  - ALOPECIA [None]
  - STEVENS-JOHNSON SYNDROME [None]
  - BLISTER [None]
  - SKIN EXFOLIATION [None]
  - BACK PAIN [None]
  - PRURITUS [None]
